FAERS Safety Report 6277555-8 (Version None)
Quarter: 2009Q3

REPORT INFORMATION
  Report Type: 
  Country: None (occurrence: None)
  Receive Date: 20090717
  Receipt Date: 20090717
  Transmission Date: 20100115
  Serious: Yes (Other)
  Sender: FDA-Public Use
  Company Number: None

PATIENT
  Sex: Female
  Weight: 54.4316 kg

DRUGS (1)
  1. SINGULAIR [Suspect]
     Indication: MULTIPLE ALLERGIES
     Dates: start: 20090611, end: 20090719

REACTIONS (5)
  - BODY TEMPERATURE INCREASED [None]
  - ERYTHEMA [None]
  - FEELING HOT [None]
  - HEART RATE INCREASED [None]
  - HYPERHIDROSIS [None]
